FAERS Safety Report 23453388 (Version 1)
Quarter: 2024Q1

REPORT INFORMATION
  Report Type: Spontaneous
  Country: CA (occurrence: CA)
  Receive Date: 20240129
  Receipt Date: 20240129
  Transmission Date: 20240410
  Serious: Yes (Hospitalization, Other)
  Sender: FDA-Public Use
  Company Number: CA-MLMSERVICE-20240116-4776276-1

PATIENT
  Age: 7 Decade
  Sex: Female

DRUGS (12)
  1. MORPHINE SULFATE [Suspect]
     Active Substance: MORPHINE SULFATE
     Indication: Surgery
     Dosage: SHORT-ACTING, A TOTAL MORPHINE EQUIVALENT DOSE (MED) OF 65 MG/DAY
     Route: 048
  2. MORPHINE SULFATE [Suspect]
     Active Substance: MORPHINE SULFATE
     Dosage: LONG-ACTING, A TOTAL MORPHINE EQUIVALENT DOSE (MED) OF 65 MG/DAY
     Route: 048
  3. HYDROMORPHONE HYDROCHLORIDE [Suspect]
     Active Substance: HYDROMORPHONE HYDROCHLORIDE
     Indication: Breakthrough pain
     Dosage: SHORT-ACTING, TOTAL MED OF 572 MG/DAY
     Route: 048
  4. HYDROMORPHONE HYDROCHLORIDE [Suspect]
     Active Substance: HYDROMORPHONE HYDROCHLORIDE
     Dosage: LONG-ACTING TOTAL MORPHINE EQUIVALENT DOSE OF 176 MG/DAY
     Route: 048
  5. HYDROMORPHONE HYDROCHLORIDE [Suspect]
     Active Substance: HYDROMORPHONE HYDROCHLORIDE
     Dosage: SHORT-ACTING, AS NEEDED, FOR AN TOTAL MORPHINE EQUIVALENT DOSEOF 176 MG/DAY
     Route: 048
  6. FENTANYL [Suspect]
     Active Substance: FENTANYL\FENTANYL CITRATE
     Indication: Product used for unknown indication
     Dosage: EVERY 72 HOURS (MED OF 389 MG/DAY) OVER THE COURSE OF 6 MONTHS
     Route: 065
  7. FENTANYL [Suspect]
     Active Substance: FENTANYL\FENTANYL CITRATE
     Dosage: EVERY 72 HOURS (2?100 MCG/HOUR FENTANYL PATCHES AND 1?25 MCG/HOUR FENTANYL PATCH EVERY 72 HOURS).
     Route: 065
  8. FENTANYL [Suspect]
     Active Substance: FENTANYL\FENTANYL CITRATE
     Dosage: EVERY 72 HOURS (2?100 MCG/HOUR FENTANYL PATCHES AND 1?25 MCG/HOUR FENTANYL PATCH EVERY 72 HOURS).
     Route: 065
  9. CANNABIDIOL [Concomitant]
     Active Substance: CANNABIDIOL
     Indication: Pain
     Dosage: OIL
     Route: 065
  10. GABAPENTIN [Concomitant]
     Active Substance: GABAPENTIN
     Indication: Neuralgia
     Dosage: 600 MILLIGRAM, Q8H
     Route: 048
  11. USTEKINUMAB [Concomitant]
     Active Substance: USTEKINUMAB
     Indication: Pain
     Dosage: UNK, 6 WEEKS
     Route: 058
  12. HERBALS\TETRAHYDROCANNABINOL UNSPECIFIED [Concomitant]
     Active Substance: HERBALS\TETRAHYDROCANNABINOL UNSPECIFIED
     Indication: Pain
     Dosage: (THC) TO CBD RATIO OF 1:20 AT A DOSE OF 0.5 ML/DAY
     Route: 048

REACTIONS (5)
  - Chest discomfort [Unknown]
  - Hyperaesthesia [Recovering/Resolving]
  - Anxiety [Unknown]
  - Hot flush [Unknown]
  - Drug withdrawal syndrome [Unknown]
